FAERS Safety Report 25754469 (Version 3)
Quarter: 2025Q4

REPORT INFORMATION
  Report Type: Spontaneous
  Country: JP (occurrence: JP)
  Receive Date: 20250903
  Receipt Date: 20251125
  Transmission Date: 20260117
  Serious: Yes (Hospitalization, Other)
  Sender: Phathom Pharmaceuticals
  Company Number: JP-PHATHOM PHARMACEUTICALS INC.-2025PHT02412

PATIENT
  Age: 76 Year
  Sex: Male
  Weight: 49.5 kg

DRUGS (13)
  1. VONOPRAZAN FUMARATE [Suspect]
     Active Substance: VONOPRAZAN FUMARATE
     Indication: Short-bowel syndrome
     Dosage: 10 MG, 1X/DAY
     Route: 065
  2. TEDUGLUTIDE [Suspect]
     Active Substance: TEDUGLUTIDE
     Indication: Short-bowel syndrome
     Dosage: UNK, 1X/DAY
     Route: 058
     Dates: start: 20250714
  3. AMMONIUM GLYCYRRHIZATE [Concomitant]
     Active Substance: AMMONIUM GLYCYRRHIZATE
  4. AZILSARTAN KAMEDOXOMIL [Concomitant]
     Active Substance: AZILSARTAN KAMEDOXOMIL
  5. RIVAROXABAN [Concomitant]
     Active Substance: RIVAROXABAN
  6. CARBIMAZOLE [Concomitant]
     Active Substance: CARBIMAZOLE
  7. AMLODIPINE [Concomitant]
     Active Substance: AMLODIPINE BESYLATE
  8. CALONAL [Concomitant]
     Active Substance: ACETAMINOPHEN
  9. MIYA-BM [Concomitant]
     Active Substance: CLOSTRIDIUM BUTYRICUM SPORES STRAIN M-55
  10. Lopemin [Concomitant]
  11. SILODOSIN [Concomitant]
     Active Substance: SILODOSIN
  12. POLAPREZINC [Concomitant]
     Active Substance: POLAPREZINC
  13. AMINO ACIDS\DEXTROSE\ELECTROLYTES NOS\MINERALS\VITAMINS [Concomitant]
     Active Substance: AMINO ACIDS\DEXTROSE\ELECTROLYTES NOS\MINERALS\VITAMINS

REACTIONS (8)
  - Urinary tract infection [Recovered/Resolved]
  - Vascular device infection [Recovered/Resolved]
  - Calculus bladder [Recovered/Resolved]
  - Urinary retention [Recovered/Resolved]
  - Benign prostatic hyperplasia [Recovered/Resolved]
  - Cholangitis [Recovering/Resolving]
  - Pleural effusion [Recovered/Resolved]
  - Off label use [Unknown]

NARRATIVE: CASE EVENT DATE: 20250723
